FAERS Safety Report 15094489 (Version 1)
Quarter: 2018Q2

REPORT INFORMATION
  Report Type: Spontaneous
  Country: US (occurrence: US)
  Receive Date: 20180630
  Receipt Date: 20180630
  Transmission Date: 20180711
  Serious: No
  Sender: FDA-Public Use
  Company Number: US-TEVA-2018-US-908667

PATIENT

DRUGS (2)
  1. TAXOTERE [Suspect]
     Active Substance: DOCETAXEL
     Route: 065
     Dates: start: 201312, end: 201404
  2. DOCETAXEL. [Suspect]
     Active Substance: DOCETAXEL
     Route: 065

REACTIONS (1)
  - Alopecia [Not Recovered/Not Resolved]
